FAERS Safety Report 26128043 (Version 1)
Quarter: 2025Q4

REPORT INFORMATION
  Report Type: Spontaneous
  Country: US (occurrence: US)
  Receive Date: 20251206
  Receipt Date: 20251206
  Transmission Date: 20260118
  Serious: No
  Sender: DIFGEN PHARMACEUTICALS LLC
  Company Number: US-Difgen-012309

PATIENT
  Sex: Female

DRUGS (2)
  1. NICOTINE [Suspect]
     Active Substance: NICOTINE
     Indication: Post-acute COVID-19 syndrome
     Route: 062
  2. NICOTINE [Suspect]
     Active Substance: NICOTINE
     Indication: Post-acute COVID-19 syndrome
     Route: 062

REACTIONS (4)
  - Wrong technique in product usage process [Unknown]
  - Product physical issue [Unknown]
  - Product adhesion issue [Unknown]
  - Off label use [Unknown]
